FAERS Safety Report 5833326-5 (Version None)
Quarter: 2008Q3

REPORT INFORMATION
  Report Type: 
  Country: None (occurrence: None)
  Receive Date: 20080804
  Receipt Date: 20080804
  Transmission Date: 20090109
  Serious: No
  Sender: FDA-Public Use
  Company Number: None

PATIENT
  Age: 51 Year
  Sex: Female

DRUGS (2)
  1. PAXIL [Suspect]
     Indication: ANXIETY
     Dosage: 10MG DAILY ORAL
     Route: 048
  2. PAXIL [Suspect]
     Indication: DEPRESSION
     Dosage: 10MG DAILY ORAL
     Route: 048

REACTIONS (4)
  - COUGH [None]
  - OESOPHAGITIS [None]
  - THROAT IRRITATION [None]
  - VOMITING PROJECTILE [None]
